FAERS Safety Report 20689581 (Version 5)
Quarter: 2024Q3

REPORT INFORMATION
  Report Type: Spontaneous
  Country: US (occurrence: US)
  Receive Date: 20220408
  Receipt Date: 20240913
  Transmission Date: 20241016
  Serious: Yes (Hospitalization)
  Sender: SANOFI AVENTIS
  Company Number: US-SA-2022SA119482

PATIENT
  Age: 6 Year
  Sex: Male

DRUGS (3)
  1. ALPROLIX [Suspect]
     Active Substance: EFTRENONACOG ALFA
     Indication: Haemorrhage prophylaxis
     Dosage: 4000 IU
     Route: 042
  2. ALPROLIX [Suspect]
     Active Substance: EFTRENONACOG ALFA
     Dosage: 1 VIAL OF 3208 UNITS AND 1 VIAL OF 531 UNITS, QW
     Route: 042
  3. ALPROLIX [Suspect]
     Active Substance: EFTRENONACOG ALFA
     Dosage: INFUSE 5300 UNITS (+/-10%) ONCE A WEEK AND AS
     Route: 042

REACTIONS (4)
  - Radius fracture [Unknown]
  - Head injury [Unknown]
  - Fall [Unknown]
  - Post-traumatic headache [Unknown]

NARRATIVE: CASE EVENT DATE: 20220328
